FAERS Safety Report 6626827-3 (Version None)
Quarter: 2010Q1

REPORT INFORMATION
  Report Type: 
  Country: None (occurrence: None)
  Receive Date: 20100225
  Receipt Date: 20100219
  Transmission Date: 20100710
  Serious: Yes (Hospitalization)
  Sender: FDA-Public Use
  Company Number: 2009-05272

PATIENT
  Age: 77 Year
  Sex: Male

DRUGS (9)
  1. THERACYS [Suspect]
     Indication: IMMUNISATION
     Dosage: I.VES.
     Dates: start: 20091117, end: 20091125
  2. FLOMAX [Concomitant]
  3. GLUCOPHAGE [Concomitant]
  4. TEGRETOL [Concomitant]
  5. SINGULAIR [Concomitant]
  6. LISINOPRIL [Concomitant]
  7. CALDANOZEPINE [Concomitant]
  8. ELAVIL [Concomitant]
  9. ASMANEX TWISTHALER [Concomitant]

REACTIONS (6)
  - ABDOMINAL SYMPTOM [None]
  - BLADDER CANCER RECURRENT [None]
  - CHILLS [None]
  - CHOLECYSTITIS [None]
  - CHOLELITHIASIS [None]
  - PYREXIA [None]
